FAERS Safety Report 14079730 (Version 1)
Quarter: 2017Q4

REPORT INFORMATION
  Report Type: Spontaneous
  Country: GB (occurrence: GB)
  Receive Date: 20171012
  Receipt Date: 20171012
  Transmission Date: 20180321
  Serious: Yes (Hospitalization)
  Sender: FDA-Public Use
  Company Number: GB-TEVA-814171ACC

PATIENT
  Age: 45 Year
  Sex: Female
  Weight: 58 kg

DRUGS (1)
  1. IBUPROFEN. [Suspect]
     Active Substance: IBUPROFEN
     Indication: MALAISE
     Dosage: 6-8 OVER TWO-THREE DAYS. SELF ADMINISTERED (NOT REGULARLY ON IBUPROFEN).
     Route: 048
     Dates: start: 20170916, end: 20170919

REACTIONS (1)
  - Acute kidney injury [Not Recovered/Not Resolved]

NARRATIVE: CASE EVENT DATE: 20170919
